FAERS Safety Report 7814771-5 (Version None)
Quarter: 2011Q4

REPORT INFORMATION
  Report Type: 
  Country: None (occurrence: None)
  Receive Date: 20111014
  Receipt Date: 20110929
  Transmission Date: 20120403
  Serious: Yes (Hospitalization)
  Sender: FDA-Public Use
  Company Number: JP-ROCHE-797879

PATIENT
  Sex: Female
  Weight: 53 kg

DRUGS (7)
  1. HERCEPTIN [Suspect]
     Route: 041
     Dates: start: 20101221, end: 20101221
  2. TAMOXIFEN CITRATE [Concomitant]
     Route: 048
     Dates: start: 20110404, end: 20110815
  3. MAZULENE S [Concomitant]
     Route: 048
     Dates: start: 20110516, end: 20110815
  4. HERCEPTIN [Suspect]
     Route: 041
     Dates: start: 20101214, end: 20101214
  5. HERCEPTIN [Suspect]
     Indication: BREAST CANCER
     Route: 041
     Dates: start: 20101207, end: 20101207
  6. HERCEPTIN [Suspect]
     Route: 041
  7. LACTOMIN [Concomitant]
     Route: 050
     Dates: start: 20110516, end: 20110815

REACTIONS (2)
  - DIZZINESS [None]
  - VERTIGO POSITIONAL [None]
